FAERS Safety Report 5397446-4 (Version None)
Quarter: 2007Q3

REPORT INFORMATION
  Report Type: 
  Country: None (occurrence: None)
  Receive Date: 20070723
  Receipt Date: 20070723
  Transmission Date: 20080115
  Serious: Yes (Death)
  Sender: FDA-Public Use
  Company Number: None

PATIENT
  Sex: Female

DRUGS (1)
  1. AVANDIA [Suspect]
     Indication: DIABETES MELLITUS
     Dosage: 4 MG 1 PER DAY
     Dates: start: 20021001, end: 20060601

REACTIONS (2)
  - CARDIOGENIC SHOCK [None]
  - SUDDEN DEATH [None]
